FAERS Safety Report 5110400-2 (Version None)
Quarter: 2006Q3

REPORT INFORMATION
  Report Type: 
  Country: None (occurrence: None)
  Receive Date: 20060914
  Receipt Date: 20051122
  Transmission Date: 20061208
  Serious: Yes (Hospitalization)
  Sender: FDA-Public Use
  Company Number: 200511858BBE

PATIENT
  Age: 83 Year
  Sex: Female
  Weight: 57 kg

DRUGS (6)
  1. GAMUNEX [Suspect]
     Dosage: 30 G, TOTAL DAILY, INTRAVENOUS
     Route: 042
     Dates: start: 20041220, end: 20041223
  2. ATIVAN [Concomitant]
  3. DILAUDID [Concomitant]
  4. EMPRACET [Concomitant]
  5. HYDROCHLOROTHIAZIDE [Concomitant]
  6. PINDOLOL [Concomitant]

REACTIONS (2)
  - CONDITION AGGRAVATED [None]
  - ENCEPHALOPATHY [None]
